FAERS Safety Report 10007857 (Version 2)
Quarter: 2014Q1

REPORT INFORMATION
  Report Type: Spontaneous
  Country: US (occurrence: None)
  Receive Date: 20140311
  Receipt Date: 20140327
  Transmission Date: 20141002
  Serious: Yes (Other)
  Sender: FDA-Public Use
  Company Number: 2014-US-001017

PATIENT
  Age: 32 Year
  Sex: Male
  Weight: 68 kg

DRUGS (10)
  1. XYREM [Suspect]
     Indication: NARCOLEPSY
     Route: 048
     Dates: start: 201003
  2. XYREM [Suspect]
     Indication: SOMNOLENCE
     Route: 048
     Dates: start: 201003
  3. ALLOPURINOL (ALLOPURINOL) [Suspect]
     Indication: PRODUCT USED FOR UNKNOWN INDICATION
  4. PULMOZYME (DORNASE ALFA) [Concomitant]
  5. SODIUM CHLORIDE (SODIUM CHLORIDE) [Concomitant]
  6. CAYSTON (AZTREONAM LYSINE) [Concomitant]
  7. DRONABINOL (DRONABINOL) [Concomitant]
  8. FIBER (POLYCARBOPHIL CALCIUM) [Concomitant]
  9. VIMPAT (LACOSAMIDE) [Concomitant]
  10. IBUPROFEN (IBUPROFEN) [Suspect]
     Indication: GOUT

REACTIONS (4)
  - Nephrolithiasis [None]
  - Gastric ulcer [None]
  - Gout [None]
  - Chromaturia [None]
